APPROVED DRUG PRODUCT: ALLOPURINOL
Active Ingredient: ALLOPURINOL
Strength: 200MG
Dosage Form/Route: TABLET;ORAL
Application: A210117 | Product #003 | TE Code: AB
Applicant: ZYDUS PHARMACEUTICALS USA INC
Approved: Jun 13, 2025 | RLD: No | RS: No | Type: RX